FAERS Safety Report 20769804 (Version 1)
Quarter: 2022Q2

REPORT INFORMATION
  Report Type: Spontaneous
  Country: NL (occurrence: NL)
  Receive Date: 20220429
  Receipt Date: 20220429
  Transmission Date: 20220721
  Serious: Yes (Other)
  Sender: FDA-Public Use
  Company Number: None

PATIENT
  Sex: Male
  Weight: 104 kg

DRUGS (1)
  1. ABILIFY MAINTENA [Suspect]
     Active Substance: ARIPIPRAZOLE
     Indication: Schizophrenia
     Dosage: 1 DF, QM
     Route: 065

REACTIONS (12)
  - Cardiovascular symptom [Unknown]
  - Oedema peripheral [Unknown]
  - Myalgia [Unknown]
  - Emotional disorder [Unknown]
  - Musculoskeletal discomfort [Unknown]
  - Libido decreased [Unknown]
  - Fatigue [Unknown]
  - Asthenia [Unknown]
  - Somnolence [Unknown]
  - Pyrexia [Unknown]
  - Constipation [Unknown]
  - Hypertension [Unknown]
